FAERS Safety Report 6143089-4 (Version None)
Quarter: 2009Q2

REPORT INFORMATION
  Report Type: 
  Country: None (occurrence: None)
  Receive Date: 20090403
  Receipt Date: 20090324
  Transmission Date: 20091009
  Serious: Yes (Hospitalization, Other)
  Sender: FDA-Public Use
  Company Number: PHHY2009BR11332

PATIENT
  Age: 71 Year
  Sex: Male

DRUGS (5)
  1. DIOVAN [Suspect]
     Indication: HYPERTENSION
     Dosage: 80 MG
     Route: 048
     Dates: start: 20070101
  2. DIOVAN [Suspect]
     Dosage: 160 MG (2 TABLETS DAILY)
     Route: 048
     Dates: start: 20080601
  3. DIGOXIN [Concomitant]
     Indication: HYPERTENSION
     Dosage: 0.5 DF (25 MG) DAILY
     Route: 048
     Dates: start: 19890101
  4. METHYLDOPA [Concomitant]
     Dosage: UNK
     Dates: end: 20080101
  5. INDAPAMIDE [Concomitant]
     Dosage: UNK
     Dates: end: 20080101

REACTIONS (5)
  - BLOOD PRESSURE DECREASED [None]
  - GENERAL PHYSICAL HEALTH DETERIORATION [None]
  - HYPERTENSION [None]
  - T-CELL LYMPHOMA [None]
  - WEIGHT DECREASED [None]
